FAERS Safety Report 4552233-1 (Version None)
Quarter: 2004Q4

REPORT INFORMATION
  Report Type: 
  Country: None (occurrence: None)
  Receive Date: 20041217
  Receipt Date: 20040929
  Transmission Date: 20050328
  Serious: No
  Sender: FDA-Public Use
  Company Number: 2004-BP-09028BP

PATIENT
  Age: 76 Year
  Sex: Female
  Weight: 102.9 kg

DRUGS (19)
  1. SPIRIVA [Suspect]
     Indication: CHRONIC OBSTRUCTIVE AIRWAYS DISEASE
     Dosage: (18 MCG),IH
     Dates: start: 20040922, end: 20040922
  2. SINGULAIR (MONTELUKAST) [Concomitant]
  3. PULMICORT [Concomitant]
  4. FORADIL [Concomitant]
  5. ZANTAC [Concomitant]
  6. GLYBURIDE [Concomitant]
  7. OXYBUTYNIN CHLORIDE [Concomitant]
  8. LEVOTHROID [Concomitant]
  9. AVANDIA [Concomitant]
  10. CENTRUM SILVER (CENTRUM SILVER) [Concomitant]
  11. ASPIRIN [Concomitant]
  12. PLAVIX [Concomitant]
  13. ISOSORBIDE (ISOSORBIDE) [Concomitant]
  14. DIOVAN [Concomitant]
  15. METOPROLOL TARTRATE [Concomitant]
  16. FUROSEMIDE (FUROSEMIDE) [Concomitant]
  17. KLOR-CON [Concomitant]
  18. AMITRIPTYLINE HCL (AMITRIPTYLINE) [Concomitant]
  19. PRAVACHOL [Concomitant]

REACTIONS (1)
  - CHEST PAIN [None]
